FAERS Safety Report 5195708-7 (Version None)
Quarter: 2006Q4

REPORT INFORMATION
  Report Type: 
  Country: None (occurrence: None)
  Receive Date: 20061226
  Receipt Date: 20061226
  Transmission Date: 20070319
  Serious: Yes (Disabling, Other)
  Sender: FDA-Public Use
  Company Number: None

PATIENT
  Age: 76 Year
  Sex: Female
  Weight: 67.1324 kg

DRUGS (4)
  1. FOSAMAX [Suspect]
     Indication: OSTEOPOROSIS
     Dosage: 1 TABLET ONCE DAILY ORALLY
     Route: 048
     Dates: start: 20000601, end: 20000701
  2. ASPIRIN [Concomitant]
  3. CALCIUM W VIT D [Concomitant]
  4. DIOVAN [Concomitant]

REACTIONS (3)
  - JOINT SWELLING [None]
  - OEDEMA PERIPHERAL [None]
  - THROMBOSIS [None]
